FAERS Safety Report 10413948 (Version 2)
Quarter: 2014Q3

REPORT INFORMATION
  Report Type: Spontaneous
  Country: US (occurrence: US)
  Receive Date: 20140827
  Receipt Date: 20140827
  Transmission Date: 20150326
  Serious: No
  Sender: FDA-Public Use
  Company Number: US-GALDERMA-US13004103

PATIENT
  Age: 67 Year
  Sex: Female

DRUGS (4)
  1. METFORMIN [Concomitant]
     Active Substance: METFORMIN HYDROCHLORIDE
     Indication: TYPE 2 DIABETES MELLITUS
     Route: 048
  2. LIPITOR [Concomitant]
     Active Substance: ATORVASTATIN CALCIUM
     Indication: HYPERCHOLESTEROLAEMIA
     Route: 048
  3. MULTIVITAMINS [Concomitant]
     Active Substance: VITAMINS
     Route: 048
  4. PLIAGLIS [Suspect]
     Active Substance: LIDOCAINE\TETRACAINE
     Indication: ANAESTHESIA
     Route: 061
     Dates: start: 20131210, end: 20131210

REACTIONS (9)
  - Eyelid oedema [Recovering/Resolving]
  - Lip swelling [Recovering/Resolving]
  - Feeling hot [Recovering/Resolving]
  - Swelling face [Recovered/Resolved]
  - Dermatitis contact [Recovered/Resolved]
  - Blister [Recovered/Resolved]
  - Erythema [Recovering/Resolving]
  - Dermatitis [Recovered/Resolved]
  - Pruritus [Recovering/Resolving]

NARRATIVE: CASE EVENT DATE: 20131211
